FAERS Safety Report 6612296-6 (Version None)
Quarter: 2010Q1

REPORT INFORMATION
  Report Type: 
  Country: None (occurrence: None)
  Receive Date: 20100303
  Receipt Date: 20100224
  Transmission Date: 20100710
  Serious: Yes (Hospitalization, Other)
  Sender: FDA-Public Use
  Company Number: US-SANOFI-AVENTIS-2010SA000917

PATIENT
  Age: 50 Year
  Sex: Male
  Weight: 77.11 kg

DRUGS (13)
  1. LANTUS [Suspect]
     Dosage: DOSE:30 UNIT(S)
     Route: 058
     Dates: start: 20060101
  2. LANTUS [Interacting]
     Dosage: DOSE:25 UNIT(S)
     Route: 058
     Dates: start: 20060101
  3. LANTUS [Interacting]
     Dosage: DOSE:50 UNIT(S)
     Route: 058
  4. OPTICLICK [Interacting]
     Dates: start: 20060101
  5. OPTICLICK [Interacting]
  6. PLAVIX [Interacting]
     Route: 065
     Dates: start: 20090101
  7. METOPROLOL TARTRATE [Interacting]
     Route: 065
     Dates: start: 20091001
  8. CRESTOR [Concomitant]
  9. AVAPRO [Concomitant]
  10. CALCIUM CHANNEL BLOCKERS [Concomitant]
  11. ASPIRIN [Concomitant]
  12. AMLODIPINE [Concomitant]
  13. ACE INHIBITOR NOS [Concomitant]

REACTIONS (5)
  - BLOOD GLUCOSE INCREASED [None]
  - BLOOD PRESSURE INCREASED [None]
  - CORONARY ARTERY OCCLUSION [None]
  - DRUG INEFFECTIVE [None]
  - GLYCOSYLATED HAEMOGLOBIN INCREASED [None]
